FAERS Safety Report 9146919 (Version 1)
Quarter: 2013Q1

REPORT INFORMATION
  Report Type: Spontaneous
  Country: DK (occurrence: None)
  Receive Date: 20130204
  Receipt Date: 20130204
  Transmission Date: 20140127
  Serious: Yes (Death, Hospitalization)
  Sender: FDA-Public Use
  Company Number: 2013MA000782

PATIENT
  Sex: Male

DRUGS (5)
  1. CITALOPRAM HYDROBROMIDE [Suspect]
  2. RISPERDAL CONSTA [Suspect]
     Route: 030
  3. BENDROFLUMETHIAZIDE [Concomitant]
  4. RAMIPRIL [Concomitant]
  5. SEROXAT [Concomitant]

REACTIONS (11)
  - Respiratory arrest [None]
  - Cardiac arrest [None]
  - Poisoning [None]
  - Completed suicide [None]
  - Depressed mood [None]
  - Suicidal ideation [None]
  - Weight increased [None]
  - Loss of consciousness [None]
  - Oedema mouth [None]
  - Pharyngeal oedema [None]
  - Dyspnoea [None]
